FAERS Safety Report 6466209-0 (Version None)
Quarter: 2009Q4

REPORT INFORMATION
  Report Type: 
  Country: None (occurrence: None)
  Receive Date: 20091202
  Receipt Date: 20091118
  Transmission Date: 20100525
  Serious: Yes (Hospitalization, Other)
  Sender: FDA-Public Use
  Company Number: PHHY2009JP46283

PATIENT
  Age: 58 Year
  Sex: Female

DRUGS (2)
  1. NEORAL [Suspect]
     Indication: PSORIASIS
     Dosage: UNK
     Route: 048
  2. TIGASON [Suspect]
     Indication: PSORIASIS
     Dosage: UNK
     Route: 048
     Dates: start: 20091001, end: 20091001

REACTIONS (3)
  - BILE DUCT STONE [None]
  - BLOOD POTASSIUM INCREASED [None]
  - BLOOD SODIUM DECREASED [None]
